FAERS Safety Report 16583660 (Version 1)
Quarter: 2019Q3

REPORT INFORMATION
  Report Type: Spontaneous
  Country: US (occurrence: US)
  Receive Date: 20190716
  Receipt Date: 20190716
  Transmission Date: 20191004
  Serious: Yes (Other)
  Sender: FDA-Public Use
  Company Number: None

PATIENT
  Sex: Female
  Weight: 68.85 kg

DRUGS (11)
  1. TRAMADOL. [Concomitant]
     Active Substance: TRAMADOL
  2. FASLODEX [Concomitant]
     Active Substance: FULVESTRANT
  3. PROAIR HFA [Concomitant]
     Active Substance: ALBUTEROL SULFATE
  4. ALPRAZOLAM. [Concomitant]
     Active Substance: ALPRAZOLAM
  5. CLOBETASOL [Concomitant]
     Active Substance: CLOBETASOL
  6. CLOTRIMAZOLE AND BETAMETHASONE DIPROPIONATE [Concomitant]
     Active Substance: BETAMETHASONE\BETAMETHASONE DIPROPIONATE\CLOTRIMAZOLE
  7. DILTIAZEM. [Concomitant]
     Active Substance: DILTIAZEM
  8. VITAMIN D [Concomitant]
     Active Substance: VITAMIN D NOS
  9. AMMONIUM LACTATE. [Concomitant]
     Active Substance: AMMONIUM LACTATE
  10. LOSARTAN. [Concomitant]
     Active Substance: LOSARTAN
  11. IBRANCE [Suspect]
     Active Substance: PALBOCICLIB
     Indication: BREAST CANCER FEMALE
     Route: 048
     Dates: start: 20190424, end: 20190716

REACTIONS (1)
  - Disease progression [None]

NARRATIVE: CASE EVENT DATE: 20190716
